FAERS Safety Report 4417502-4 (Version None)
Quarter: 2004Q3

REPORT INFORMATION
  Report Type: 
  Country: None (occurrence: None)
  Receive Date: 20040804
  Receipt Date: 20040719
  Transmission Date: 20050211
  Serious: Yes (Hospitalization)
  Sender: FDA-Public Use
  Company Number: K200401084

PATIENT
  Age: 53 Year
  Sex: Male
  Weight: 75 kg

DRUGS (6)
  1. PITRESSIN [Suspect]
     Indication: SEPTIC SHOCK
     Dosage: 0.01-0.10 U/MIN, VARIOUS TIMES, INTRAVENOUS
     Route: 042
  2. PHENYTOIN [Concomitant]
  3. VALPROIC ACID [Concomitant]
  4. NITROFURANTOIN [Concomitant]
  5. SERTRALINE HYDROCHLORIDE [Concomitant]
  6. AMANTADINE (AMANTADINE) [Concomitant]

REACTIONS (4)
  - BLOOD SODIUM DECREASED [None]
  - DIABETES INSIPIDUS [None]
  - DRUG INEFFECTIVE [None]
  - HYPERNATRAEMIA [None]
